FAERS Safety Report 15465560 (Version 1)
Quarter: 2018Q4

REPORT INFORMATION
  Report Type: Report from Study
  Country: US (occurrence: US)
  Receive Date: 20181004
  Receipt Date: 20181004
  Transmission Date: 20190204
  Serious: Yes (Hospitalization)
  Sender: FDA-Public Use
  Company Number: US-CELGENEUS-USA-20180306018

PATIENT
  Age: 62 Year
  Sex: Female
  Weight: 98.4 kg

DRUGS (2)
  1. VIDAZA [Suspect]
     Active Substance: AZACITIDINE
     Indication: ACUTE MYELOID LEUKAEMIA
     Dosage: 82.8 MILLIGRAM
     Route: 058
     Dates: start: 20170821, end: 20180310
  2. PLATELETS [Concomitant]
     Active Substance: HUMAN PLATELET, ALLOGENIC
     Indication: RECTAL HAEMORRHAGE
     Dosage: 1 IU (INTERNATIONAL UNIT)
     Route: 042
     Dates: start: 20171227, end: 20171227

REACTIONS (2)
  - Febrile neutropenia [Not Recovered/Not Resolved]
  - Pneumonia [Not Recovered/Not Resolved]

NARRATIVE: CASE EVENT DATE: 20180309
